FAERS Safety Report 4493770-8 (Version None)
Quarter: 2004Q4

REPORT INFORMATION
  Report Type: 
  Country: None (occurrence: None)
  Receive Date: 20041102
  Receipt Date: 20041019
  Transmission Date: 20050328
  Serious: Yes (Hospitalization)
  Sender: FDA-Public Use
  Company Number: 2004240403DE

PATIENT
  Age: 56 Year
  Sex: Female
  Weight: 56 kg

DRUGS (1)
  1. CELEBREX [Suspect]
     Indication: ARTHRALGIA
     Dosage: 200 MG, ORAL
     Route: 048
     Dates: end: 20030401

REACTIONS (6)
  - AUTOIMMUNE DISORDER [None]
  - GASTRITIS [None]
  - GASTRITIS EROSIVE [None]
  - HAEMOLYTIC ANAEMIA [None]
  - MIXED CONNECTIVE TISSUE DISEASE [None]
  - WEIGHT DECREASED [None]
